FAERS Safety Report 12943089 (Version 2)
Quarter: 2017Q1

REPORT INFORMATION
  Report Type: Spontaneous
  Country: US (occurrence: US)
  Receive Date: 20161115
  Receipt Date: 20170113
  Transmission Date: 20170428
  Serious: No
  Sender: FDA-Public Use
  Company Number: US-PFIZER INC-2016527901

PATIENT
  Age: 69 Year
  Sex: Female

DRUGS (1)
  1. KERYDIN [Suspect]
     Active Substance: TAVABOROLE
     Indication: ONYCHOMYCOSIS
     Dosage: 10 ML, 1X/DAY
     Dates: start: 20160307

REACTIONS (2)
  - Ingrowing nail [Unknown]
  - Skin exfoliation [Unknown]
